FAERS Safety Report 5699297-X (Version None)
Quarter: 2008Q2

REPORT INFORMATION
  Report Type: 
  Country: None (occurrence: None)
  Receive Date: 20080404
  Receipt Date: 20080331
  Transmission Date: 20081010
  Serious: Yes (Death, Life-Threatening, Other)
  Sender: FDA-Public Use
  Company Number: CLOF-1000110

PATIENT
  Age: 32 Year
  Sex: Male
  Weight: 80 kg

DRUGS (3)
  1. CLOFARABINE (CLOFARABINE) SOLUTION FOR INFUSION [Suspect]
     Indication: ACUTE MYELOID LEUKAEMIA
     Dosage: 20 MG/M2, QDX5, INTRAVENOUS
     Route: 042
     Dates: start: 20080225, end: 20080229
  2. CYTARABINE [Suspect]
     Indication: ACUTE MYELOID LEUKAEMIA
     Dosage: 3.4 G, QDX5, INTRAVENOUS
     Route: 042
     Dates: start: 20080225, end: 20080229
  3. ACYCLOVIR [Concomitant]

REACTIONS (15)
  - ASPIRATION [None]
  - BACTERIAL INFECTION [None]
  - CANDIDA SEROLOGY POSITIVE [None]
  - CEREBRAL HAEMORRHAGE [None]
  - DIALYSIS [None]
  - DIARRHOEA [None]
  - DISORIENTATION [None]
  - ESCHERICHIA BACTERAEMIA [None]
  - HYPERBILIRUBINAEMIA [None]
  - MENINGITIS BACTERIAL [None]
  - RASH [None]
  - SPEECH DISORDER [None]
  - STAPHYLOCOCCAL INFECTION [None]
  - URINARY BLADDER HAEMORRHAGE [None]
  - URINARY TRACT OBSTRUCTION [None]
